FAERS Safety Report 8500574-5 (Version None)
Quarter: 2012Q3

REPORT INFORMATION
  Report Type: 
  Country: None (occurrence: None)
  Receive Date: 20120710
  Receipt Date: 20120705
  Transmission Date: 20120928
  Serious: Yes (Hospitalization)
  Sender: FDA-Public Use
  Company Number: TR-BAYER-2012-067556

PATIENT
  Age: 39 Year
  Sex: Female

DRUGS (3)
  1. BETASERON [Suspect]
     Dosage: 8 MIU, UNK
     Route: 058
     Dates: start: 20120523, end: 20120622
  2. LIORESAL [Concomitant]
  3. TEGRETOL [Concomitant]

REACTIONS (3)
  - AFFECTIVE DISORDER [None]
  - PRURITUS [None]
  - SKIN OEDEMA [None]
